FAERS Safety Report 8480053-4 (Version None)
Quarter: 2012Q2

REPORT INFORMATION
  Report Type: 
  Country: None (occurrence: None)
  Receive Date: 20120629
  Receipt Date: 20120627
  Transmission Date: 20120825
  Serious: No
  Sender: FDA-Public Use
  Company Number: US-PFIZER INC-2012119042

PATIENT
  Sex: Female

DRUGS (5)
  1. PAROXETINE [Concomitant]
     Indication: BIPOLAR DISORDER
     Dosage: 40 MG, DAILY
  2. OXCARBAZEPINE [Concomitant]
     Indication: BIPOLAR DISORDER
     Dosage: 300 MG, 2X/DAY
  3. CHANTIX [Suspect]
     Indication: SMOKING CESSATION THERAPY
     Dosage: 1/2MG DAILY TITRATED TO 1 MG BID
     Route: 048
     Dates: start: 20120504
  4. AMLODIPINE [Concomitant]
     Indication: HYPERTENSION
     Dosage: 10 MG, DAILY
  5. METOPROLOL [Concomitant]
     Dosage: UNK

REACTIONS (3)
  - THERAPEUTIC RESPONSE UNEXPECTED [None]
  - WEIGHT INCREASED [None]
  - STRESS [None]
